FAERS Safety Report 16973999 (Version 1)
Quarter: 2019Q4

REPORT INFORMATION
  Report Type: Spontaneous
  Country: BR (occurrence: BR)
  Receive Date: 20191030
  Receipt Date: 20191030
  Transmission Date: 20200122
  Serious: Yes (Other)
  Sender: FDA-Public Use
  Company Number: BR-TEVA-2019-BR-1129766

PATIENT
  Age: 72 Year
  Sex: Male
  Weight: 67 kg

DRUGS (4)
  1. COBAVITAL [Concomitant]
     Active Substance: COBAMAMIDE\CYPROHEPTADINE HYDROCHLORIDE
     Indication: APPETITE DISORDER
     Dosage: STARTED SINCE 6 MONTHS AGO
  2. AZILECT [Suspect]
     Active Substance: RASAGILINE MESYLATE
     Indication: PARKINSON^S DISEASE
     Dosage: 1 MG, HALF TABLET PER DAY
     Dates: start: 201910, end: 201910
  3. ATENOLOL. [Concomitant]
     Active Substance: ATENOLOL
     Indication: BLOOD PRESSURE MANAGEMENT
     Dosage: SINCE 2 YEARS AGO
  4. VITAMIN D [Concomitant]
     Active Substance: VITAMIN D NOS
     Indication: VITAMIN D DEFICIENCY
     Dates: start: 2019

REACTIONS (9)
  - Somnolence [Recovered/Resolved]
  - Near death experience [Unknown]
  - Decreased appetite [Recovered/Resolved]
  - Tremor [Unknown]
  - Malaise [Unknown]
  - Dizziness [Recovered/Resolved]
  - Adverse event [Unknown]
  - Depression [Recovered/Resolved]
  - Skin exfoliation [Recovered/Resolved]
